FAERS Safety Report 23355316 (Version 2)
Quarter: 2024Q1

REPORT INFORMATION
  Report Type: Spontaneous
  Country: US (occurrence: US)
  Receive Date: 20240102
  Receipt Date: 20240105
  Transmission Date: 20240409
  Serious: Yes (Hospitalization, Other)
  Sender: FDA-Public Use
  Company Number: US-BRISTOL-MYERS SQUIBB COMPANY-2023-187741

PATIENT
  Age: 80 Year
  Sex: Male
  Weight: 68.95 kg

DRUGS (1)
  1. REVLIMID [Suspect]
     Active Substance: LENALIDOMIDE
     Indication: Myelodysplastic syndrome
     Dosage: 3W, 1W OFF
     Route: 048

REACTIONS (2)
  - Myocardial infarction [Unknown]
  - Off label use [Unknown]
